FAERS Safety Report 12171853 (Version 1)
Quarter: 2016Q1

REPORT INFORMATION
  Report Type: Spontaneous
  Country: US (occurrence: US)
  Receive Date: 20160311
  Receipt Date: 20160311
  Transmission Date: 20160526
  Serious: No
  Sender: FDA-Public Use
  Company Number: US-GALDERMA-US16000604

PATIENT
  Sex: Male

DRUGS (1)
  1. MIRVASO [Suspect]
     Active Substance: BRIMONIDINE TARTRATE
     Indication: ROSACEA
     Route: 061
     Dates: end: 20160130

REACTIONS (3)
  - Rosacea [Not Recovered/Not Resolved]
  - Flushing [Not Recovered/Not Resolved]
  - Rebound effect [Not Recovered/Not Resolved]
